FAERS Safety Report 8096317-2 (Version None)
Quarter: 2012Q1

REPORT INFORMATION
  Report Type: 
  Country: None (occurrence: None)
  Receive Date: 20120129
  Receipt Date: 20111209
  Transmission Date: 20120608
  Serious: No
  Sender: FDA-Public Use
  Company Number: US-ABBOTT-11P-163-0882196-00

PATIENT
  Sex: Male

DRUGS (6)
  1. HUMIRA [Suspect]
  2. CRESTOR [Concomitant]
     Indication: PRODUCT USED FOR UNKNOWN INDICATION
  3. HUMIRA [Suspect]
     Dosage: DAY 8
  4. FLEXERIL [Concomitant]
     Indication: PRODUCT USED FOR UNKNOWN INDICATION
  5. MOBIC [Concomitant]
     Indication: PRODUCT USED FOR UNKNOWN INDICATION
  6. HUMIRA [Suspect]
     Indication: PSORIASIS
     Dosage: DAY 1
     Dates: start: 20111128, end: 20111128

REACTIONS (3)
  - CHANGE OF BOWEL HABIT [None]
  - INJECTION SITE PAIN [None]
  - INJECTION SITE PRURITUS [None]
